FAERS Safety Report 22011683 (Version 1)
Quarter: 2023Q1

REPORT INFORMATION
  Report Type: Spontaneous
  Country: CN (occurrence: CN)
  Receive Date: 20230220
  Receipt Date: 20230220
  Transmission Date: 20230418
  Serious: Yes (Hospitalization, Other)
  Sender: FDA-Public Use
  Company Number: CN-PFIZER INC-PV202300030520

PATIENT
  Age: 10 Year
  Sex: Female
  Weight: 30 kg

DRUGS (2)
  1. EPIRUBICIN [Suspect]
     Active Substance: EPIRUBICIN
     Indication: Acute lymphocytic leukaemia
     Dosage: 32.4 MG, 1X/DAY
     Route: 041
     Dates: start: 20221125, end: 20221126
  2. VINDESINE SULFATE [Suspect]
     Active Substance: VINDESINE SULFATE
     Indication: Acute lymphocytic leukaemia
     Dosage: 3.24 MG, 1X/DAY
     Route: 041
     Dates: start: 20221125, end: 20221125

REACTIONS (1)
  - Myelosuppression [Recovering/Resolving]

NARRATIVE: CASE EVENT DATE: 20221205
